FAERS Safety Report 12177569 (Version 6)
Quarter: 2020Q3

REPORT INFORMATION
  Report Type: Spontaneous
  Country: US (occurrence: US)
  Receive Date: 20160314
  Receipt Date: 20200722
  Transmission Date: 20201102
  Serious: Yes (Other)
  Sender: FDA-Public Use
  Company Number: US-PFIZER INC-2016151110

PATIENT
  Age: 74 Year
  Sex: Female
  Weight: 66 kg

DRUGS (11)
  1. PREMARIN [Suspect]
     Active Substance: ESTROGENS, CONJUGATED
     Indication: VULVOVAGINAL DRYNESS
  2. PREMARIN [Suspect]
     Active Substance: ESTROGENS, CONJUGATED
     Indication: HORMONE REPLACEMENT THERAPY
  3. PREMARIN [Suspect]
     Active Substance: ESTROGENS, CONJUGATED
     Indication: HYSTERECTOMY
     Dosage: UNK, 2X/WEEK (IN PM )
     Dates: start: 2015
  4. METOPROLOL TARTRATE. [Concomitant]
     Active Substance: METOPROLOL TARTRATE
     Indication: HYPERTENSION
     Dosage: 100 MG, 2X/DAY
     Dates: start: 201501
  5. PREMARIN [Suspect]
     Active Substance: ESTROGENS, CONJUGATED
     Indication: HORMONE REPLACEMENT THERAPY
     Dosage: 0.625 MG, CYCLIC (1X/DAY FOR 25 DAYS AND 3 DAYS WITHOUT TAKE IT)
     Dates: start: 1982
  6. PREMARIN [Suspect]
     Active Substance: ESTROGENS, CONJUGATED
     Indication: BLADDER OPERATION
     Dosage: 1 G, (2?3 TIMES AWEEK)
     Route: 067
  7. SERTRALINE [Concomitant]
     Active Substance: SERTRALINE HYDROCHLORIDE
     Indication: MENOPAUSE
     Dosage: 50 MG, 1X/DAY (AT NIGHT)
     Dates: start: 1985
  8. NATURAL PROGESTERONE [Suspect]
     Active Substance: PROGESTERONE
     Dosage: 100 MG, 10 DAYS MONTHLY
     Route: 048
     Dates: start: 1983
  9. LOSARTAN POTASSIUM. [Concomitant]
     Active Substance: LOSARTAN POTASSIUM
     Indication: HYPERTENSION
     Dosage: 100 MG, 1X/DAY
  10. LEVOTHYROXINE. [Concomitant]
     Active Substance: LEVOTHYROXINE
     Indication: THYROID DISORDER
     Dosage: 75 UG, 1X/DAY
  11. MAXALT [Concomitant]
     Active Substance: RIZATRIPTAN BENZOATE
     Indication: MIGRAINE
     Dosage: 100 MG, AS NEEDED

REACTIONS (5)
  - Musculoskeletal discomfort [Unknown]
  - Electrocardiogram abnormal [Unknown]
  - Cholelithiasis [Unknown]
  - Post procedural infection [Unknown]
  - Chest pain [Unknown]

NARRATIVE: CASE EVENT DATE: 20160307
